FAERS Safety Report 7065106-X (Version None)
Quarter: 2010Q4

REPORT INFORMATION
  Report Type: 
  Country: None (occurrence: None)
  Receive Date: 20101027
  Receipt Date: 19920825
  Transmission Date: 20110411
  Serious: Yes (Death)
  Sender: FDA-Public Use
  Company Number: DE-ROCHE-920318332001

PATIENT
  Sex: Female
  Weight: 45.7 kg

DRUGS (6)
  1. ROCEPHIN [Suspect]
     Route: 042
     Dates: start: 19920720, end: 19920721
  2. ROCEPHIN [Suspect]
     Route: 042
     Dates: start: 19920722, end: 19920728
  3. CEFUROXIME [Concomitant]
     Route: 048
     Dates: start: 19920721, end: 19920723
  4. DREISAVIT [Concomitant]
     Indication: HAEMODIALYSIS
     Route: 048
     Dates: start: 19920720, end: 19920825
  5. ERYFER [Concomitant]
     Indication: HAEMODIALYSIS
     Route: 048
     Dates: start: 19920720, end: 19920825
  6. ANTI-PHOSPHAT [Concomitant]
     Indication: HYPERPARATHYROIDISM
     Route: 048
     Dates: start: 19920720, end: 19920827

REACTIONS (2)
  - CACHEXIA [None]
  - TRANSAMINASES INCREASED [None]
